FAERS Safety Report 4807380-3 (Version None)
Quarter: 2005Q4

REPORT INFORMATION
  Report Type: 
  Country: None (occurrence: None)
  Receive Date: 20051024
  Receipt Date: 20050720
  Transmission Date: 20060501
  Serious: Yes (Hospitalization)
  Sender: FDA-Public Use
  Company Number: US-MERCK-0507USA03176

PATIENT
  Age: 76 Year
  Sex: Female
  Weight: 78 kg

DRUGS (14)
  1. FOSAMAX [Concomitant]
     Indication: OSTEOARTHRITIS
     Route: 065
  2. SOMA [Concomitant]
     Route: 065
  3. TEVETEN [Concomitant]
     Indication: CHEST PAIN
     Route: 065
  4. MOBIC [Concomitant]
     Route: 065
  5. ASPIRIN [Concomitant]
     Route: 065
  6. PRAVACHOL [Concomitant]
     Indication: HYPERLIPIDAEMIA
     Route: 065
  7. VIOXX [Suspect]
     Indication: OSTEOARTHRITIS
     Route: 048
     Dates: start: 19990813, end: 20040301
  8. VIOXX [Suspect]
     Route: 048
     Dates: start: 20040301, end: 20040930
  9. VIOXX [Suspect]
     Indication: BURSITIS
     Route: 048
     Dates: start: 19990813, end: 20040301
  10. VIOXX [Suspect]
     Route: 048
     Dates: start: 20040301, end: 20040930
  11. FLEXERIL [Concomitant]
     Indication: BACK PAIN
     Route: 048
  12. CARDIZEM [Concomitant]
     Indication: CHEST PAIN
     Route: 065
  13. CARDIZEM [Concomitant]
     Indication: DYSPNOEA
     Route: 065
  14. IMDUR [Concomitant]
     Indication: CHEST PAIN
     Route: 065

REACTIONS (23)
  - ANAEMIA [None]
  - ANXIETY [None]
  - CARDIAC FAILURE CONGESTIVE [None]
  - CONTUSION [None]
  - DACRYOSTENOSIS ACQUIRED [None]
  - DEPRESSION [None]
  - DYSPNOEA [None]
  - FALL [None]
  - GASTROOESOPHAGEAL REFLUX DISEASE [None]
  - HYPERTENSION [None]
  - HYPOVOLAEMIA [None]
  - INTERVERTEBRAL DISC PROTRUSION [None]
  - LIMB INJURY [None]
  - LOWER LIMB FRACTURE [None]
  - ORTHOSTATIC HYPOTENSION [None]
  - PALPITATIONS [None]
  - PULMONARY HYPERTENSION [None]
  - SCIATICA [None]
  - SICCA SYNDROME [None]
  - SYNCOPE [None]
  - TACHYCARDIA [None]
  - THROAT TIGHTNESS [None]
  - THYROID DISORDER [None]
